FAERS Safety Report 16359539 (Version 2)
Quarter: 2019Q3

REPORT INFORMATION
  Report Type: Spontaneous
  Country: US (occurrence: US)
  Receive Date: 20190528
  Receipt Date: 20190705
  Transmission Date: 20191004
  Serious: Yes (Death)
  Sender: FDA-Public Use
  Company Number: US-BIOVITRUM-2019US1209

PATIENT
  Age: 33 Year
  Sex: Female
  Weight: 70 kg

DRUGS (6)
  1. MICAFUNGIN. [Concomitant]
     Active Substance: MICAFUNGIN SODIUM
     Indication: FUNGAL SEPSIS
     Dosage: 100 MG IN 100 ML NS
     Route: 042
     Dates: start: 20190516, end: 20190520
  2. ACYCLOVIR. [Concomitant]
     Active Substance: ACYCLOVIR
     Indication: ANTIVIRAL PROPHYLAXIS
     Route: 048
     Dates: start: 20190514, end: 20190520
  3. VASOPRESSIN. [Concomitant]
     Active Substance: VASOPRESSIN
     Indication: SEPTIC SHOCK
     Dosage: 20 UNITS IN 100 ML D5W (TITRATED)
     Route: 042
     Dates: start: 20190517, end: 20190520
  4. NOREPINEPHRINE. [Concomitant]
     Active Substance: NOREPINEPHRINE
     Indication: SEPTIC SHOCK
     Dosage: 16 MG IN 250 ML D5W (TITRATED)
     Route: 042
     Dates: start: 20190517, end: 20190520
  5. SULFAMETHOXAZOLE/TRIMETHOPRIM [Concomitant]
     Active Substance: SULFAMETHOXAZOLE\TRIMETHOPRIM
     Indication: ANTIFUNGAL PROPHYLAXIS
     Dosage: 80 MG IN 125 ML D5W
     Route: 042
     Dates: start: 20190518, end: 20190520
  6. GAMIFANT [Suspect]
     Active Substance: EMAPALUMAB-LZSG
     Indication: HAEMOPHAGOCYTIC LYMPHOHISTIOCYTOSIS
     Dosage: USED BASELINE WEIGHT - PT RECEIVED 70 MG DOSE
     Route: 042
     Dates: start: 20190517, end: 20190517

REACTIONS (1)
  - Septic shock [Fatal]

NARRATIVE: CASE EVENT DATE: 20190502
